FAERS Safety Report 5450184-1 (Version None)
Quarter: 2007Q3

REPORT INFORMATION
  Report Type: 
  Country: None (occurrence: None)
  Receive Date: 20070912
  Receipt Date: 20070904
  Transmission Date: 20080115
  Serious: Yes (Other)
  Sender: FDA-Public Use
  Company Number: DE-BRACCO-BRO-012001

PATIENT
  Sex: Male

DRUGS (8)
  1. MULTIHANCE [Suspect]
     Route: 042
     Dates: start: 20020417, end: 20020417
  2. MULTIHANCE [Suspect]
     Route: 042
     Dates: start: 20020430, end: 20020430
  3. MULTIHANCE [Suspect]
     Route: 042
  4. MAGNEVIST [Suspect]
     Route: 042
     Dates: start: 20011220, end: 20011220
  5. MAGNEVIST [Suspect]
     Route: 042
     Dates: start: 20020611, end: 20020611
  6. MAGNEVIST [Suspect]
     Route: 042
  7. MAGNEVIST [Suspect]
     Route: 042
  8. MAGNEVIST [Suspect]
     Route: 042

REACTIONS (1)
  - NEPHROGENIC SYSTEMIC FIBROSIS [None]
